FAERS Safety Report 21272105 (Version 11)
Quarter: 2023Q2

REPORT INFORMATION
  Report Type: Report from Study
  Country: FR (occurrence: None)
  Receive Date: 20220830
  Receipt Date: 20230620
  Transmission Date: 20230721
  Serious: Yes (Life-Threatening, Hospitalization, Other)
  Sender: FDA-Public Use
  Company Number: FR-Eisai Medical Research-EC-2022-117464

PATIENT
  Age: 74 Year
  Sex: Male
  Weight: 79 kg

DRUGS (10)
  1. LENVATINIB [Suspect]
     Active Substance: LENVATINIB
     Indication: Clear cell renal cell carcinoma
     Route: 048
     Dates: start: 20220505, end: 20220608
  2. LENVATINIB [Suspect]
     Active Substance: LENVATINIB
     Route: 048
     Dates: start: 20220721, end: 20220811
  3. PEMBROLIZUMAB [Suspect]
     Active Substance: PEMBROLIZUMAB
     Indication: Clear cell renal cell carcinoma
     Dosage: MK-1308A 425 MG (QUAVONLIMAB [MK-1308] 25 MG + PEMBROLIZUMAB [MK-3475] 400 MG)
     Route: 041
     Dates: start: 20220505, end: 20220505
  4. QUAVONLIMAB [Suspect]
     Active Substance: QUAVONLIMAB
     Dosage: MK-1308A 425 MG (QUAVONLIMAB [MK-1308] 25 MG + PEMBROLIZUMAB [MK-3475] 400 MG)
     Route: 041
     Dates: start: 20220922, end: 20230308
  5. RABEPRAZOLE SODIUM [Concomitant]
     Active Substance: RABEPRAZOLE SODIUM
     Dates: start: 199701
  6. BROMAZEPAM [Concomitant]
     Active Substance: BROMAZEPAM
     Dates: start: 201301
  7. IRBESARTAN [Concomitant]
     Active Substance: IRBESARTAN
     Dates: start: 201301
  8. FENOFIBRATE [Concomitant]
     Active Substance: FENOFIBRATE
     Dates: start: 201301
  9. AMLODIPINE [Concomitant]
     Active Substance: AMLODIPINE BESYLATE
     Dates: start: 20220405
  10. GAVISCON [Concomitant]
     Active Substance: ALUMINUM HYDROXIDE\MAGNESIUM CARBONATE
     Dates: start: 20220601

REACTIONS (2)
  - Febrile neutropenia [Recovered/Resolved]
  - Neutropenia [Recovered/Resolved]

NARRATIVE: CASE EVENT DATE: 20220609
